FAERS Safety Report 6071361-5 (Version None)
Quarter: 2009Q1

REPORT INFORMATION
  Report Type: 
  Country: None (occurrence: None)
  Receive Date: 20090204
  Receipt Date: 20090122
  Transmission Date: 20090719
  Serious: Yes (Hospitalization)
  Sender: FDA-Public Use
  Company Number: 1-17369161

PATIENT
  Age: 71 Year
  Sex: Female

DRUGS (12)
  1. AMIODARONE HCL [Suspect]
     Indication: ATRIAL FIBRILLATION
     Dosage: 200 MG 3 TIMES DAILY, ORAL
     Route: 048
  2. CALCIUM ACETATE [Concomitant]
  3. IRON [Concomitant]
  4. FUROSEMIDE [Concomitant]
  5. POTASSIUM CHLORIDE [Concomitant]
  6. HYDRALAZINE HCL [Concomitant]
  7. PREDNISONE [Concomitant]
  8. PANTOPRAZOLE [Concomitant]
  9. SODIUM BICARBONATE [Concomitant]
  10. CLONIDINE HCL [Concomitant]
  11. GLARGINE INSULIN [Concomitant]
  12. NIFEDIPINE [Concomitant]

REACTIONS (6)
  - ACCIDENTAL OVERDOSE [None]
  - ALANINE AMINOTRANSFERASE ABNORMAL [None]
  - CORNEAL DEPOSITS [None]
  - HEPATOTOXICITY [None]
  - LIPIDS INCREASED [None]
  - RENAL FAILURE [None]
